FAERS Safety Report 16357506 (Version 1)
Quarter: 2019Q2

REPORT INFORMATION
  Report Type: Spontaneous
  Country: FR (occurrence: FR)
  Receive Date: 20190527
  Receipt Date: 20190527
  Transmission Date: 20190711
  Serious: Yes (Other)
  Sender: FDA-Public Use
  Company Number: FR-TEVA-2019-FR-1055564

PATIENT
  Age: 19 Year
  Sex: Male

DRUGS (6)
  1. DIAZEPAM. [Suspect]
     Active Substance: DIAZEPAM
     Route: 065
  2. VERAPAMIL [Suspect]
     Active Substance: VERAPAMIL HYDROCHLORIDE
     Indication: CLUSTER HEADACHE
     Route: 065
  3. DIAZEPAM. [Suspect]
     Active Substance: DIAZEPAM
     Dosage: INITIAL DOSE UNKNOWN; FURTHER INCREASED UP TO 200MG
     Route: 065
  4. METHADONE [Suspect]
     Active Substance: METHADONE HYDROCHLORIDE
     Dosage: 30 MILLIGRAM DAILY;
     Route: 065
     Dates: start: 2015
  5. KETAMINE [Suspect]
     Active Substance: KETAMINE
     Dosage: 5 GRAM DAILY;
     Route: 045
  6. KETAMINE [Suspect]
     Active Substance: KETAMINE
     Dosage: AT THE TIME OF THE REPORT, HE SNORTED KETAMINE ONCE A WEEK
     Route: 045

REACTIONS (4)
  - Overdose [Unknown]
  - Drug abuse [Unknown]
  - Drug ineffective [Unknown]
  - Cluster headache [Unknown]
